FAERS Safety Report 24770948 (Version 3)
Quarter: 2025Q3

REPORT INFORMATION
  Report Type: Report from Study
  Country: CA (occurrence: CA)
  Receive Date: 20241224
  Receipt Date: 20250709
  Transmission Date: 20251021
  Serious: Yes (Other)
  Sender: SANDOZ
  Company Number: CA-SANDOZ-SDZ2024CA095646

PATIENT
  Sex: Female

DRUGS (2)
  1. HYRIMOZ [Suspect]
     Active Substance: ADALIMUMAB-ADAZ
     Dosage: 20 MG (MILLIGRAM)
     Route: 058
     Dates: start: 20241004
  2. HYRIMOZ [Suspect]
     Active Substance: ADALIMUMAB-ADAZ
     Indication: Juvenile idiopathic arthritis
     Dosage: 40 MG, Q2W, NULL;BIWEEKLY
     Route: 058
     Dates: start: 20241004

REACTIONS (5)
  - Juvenile idiopathic arthritis [Recovering/Resolving]
  - Pertussis [Recovering/Resolving]
  - General physical health deterioration [Unknown]
  - Loss of personal independence in daily activities [Unknown]
  - Viral infection [Unknown]
